FAERS Safety Report 6970986-X (Version None)
Quarter: 2010Q3

REPORT INFORMATION
  Report Type: 
  Country: None (occurrence: None)
  Receive Date: 20100908
  Receipt Date: 20100827
  Transmission Date: 20110219
  Serious: Yes (Other)
  Sender: FDA-Public Use
  Company Number: US-PFIZER INC-2010022887

PATIENT
  Sex: Male

DRUGS (12)
  1. CHANTIX [Suspect]
     Indication: SMOKING CESSATION THERAPY
     Dosage: STARTER PACK
     Route: 048
     Dates: start: 20090601, end: 20090801
  2. XANAX [Suspect]
     Dosage: UNK
  3. ALLEGRA D 24 HOUR [Concomitant]
     Indication: SINUSITIS
     Dosage: UNK
     Dates: start: 20021101, end: 20090801
  4. DARVOCET [Concomitant]
     Indication: PAIN MANAGEMENT
     Dosage: UNK
     Dates: start: 20040701, end: 20100301
  5. BUPROPION [Concomitant]
     Indication: DEPRESSION
     Dosage: UNK
     Dates: start: 20050301, end: 20090901
  6. SYMBICORT [Concomitant]
     Indication: CHRONIC OBSTRUCTIVE PULMONARY DISEASE
     Dosage: UNK
     Dates: start: 20080101
  7. SALBUTAMOL [Concomitant]
     Indication: CHRONIC OBSTRUCTIVE PULMONARY DISEASE
     Dosage: UNK
     Dates: start: 20080101
  8. SALBUTAMOL [Concomitant]
     Indication: BRONCHITIS
  9. SEROQUEL [Concomitant]
     Indication: BIPOLAR DISORDER
     Dosage: UNK
     Dates: start: 20090501
  10. SEROQUEL [Concomitant]
     Indication: INSOMNIA
  11. AVANDAMET [Concomitant]
     Indication: DIABETES MELLITUS
     Dosage: UNK
     Dates: start: 20090501
  12. NITROGLYCERIN [Concomitant]
     Indication: CHEST PAIN
     Dosage: UNK
     Dates: start: 20090601

REACTIONS (5)
  - AGGRESSION [None]
  - ANXIETY [None]
  - CONVULSION [None]
  - DEPRESSION [None]
  - PANIC ATTACK [None]
